FAERS Safety Report 18383942 (Version 1)
Quarter: 2020Q4

REPORT INFORMATION
  Report Type: Report from Study
  Country: US (occurrence: US)
  Receive Date: 20201014
  Receipt Date: 20201014
  Transmission Date: 20210114
  Serious: Yes (Other)
  Sender: FDA-Public Use
  Company Number: US-JNJFOC-A-NJ2020-204088

PATIENT
  Age: 55 Year
  Sex: Male
  Weight: 99.77 kg

DRUGS (4)
  1. OXYGEN. [Concomitant]
     Active Substance: OXYGEN
     Dosage: 6 L
     Route: 048
  2. OPSUMIT [Suspect]
     Active Substance: MACITENTAN
     Indication: PULMONARY ARTERIAL HYPERTENSION
     Dosage: 10 MG, QD
     Route: 048
  3. SILDENAFIL CITRATE. [Concomitant]
     Active Substance: SILDENAFIL CITRATE
  4. VELETRI [Suspect]
     Active Substance: EPOPROSTENOL
     Indication: PULMONARY ARTERIAL HYPERTENSION
     Dosage: 18 NG/KG, PER MIN
     Route: 042

REACTIONS (20)
  - Catheter site pruritus [Unknown]
  - Nervousness [Unknown]
  - Erythema [Unknown]
  - Purulent discharge [Unknown]
  - Gait disturbance [Unknown]
  - Muscle spasms [Unknown]
  - Tremor [Unknown]
  - Somnolence [Unknown]
  - Dependence on oxygen therapy [Unknown]
  - Muscular weakness [Unknown]
  - Scratch [Unknown]
  - Catheter site irritation [Unknown]
  - Neuropathy peripheral [Unknown]
  - Condition aggravated [Unknown]
  - Acne [Not Recovered/Not Resolved]
  - Dizziness postural [Unknown]
  - Pruritus [Unknown]
  - Chest pain [Unknown]
  - Catheter site erythema [Unknown]
  - Fatigue [Unknown]

NARRATIVE: CASE EVENT DATE: 202006
